FAERS Safety Report 15124095 (Version 2)
Quarter: 2018Q3

REPORT INFORMATION
  Report Type: Spontaneous
  Country: US (occurrence: US)
  Receive Date: 20180710
  Receipt Date: 20180720
  Transmission Date: 20181010
  Serious: Yes (Hospitalization, Other)
  Sender: FDA-Public Use
  Company Number: US-APOTEX-2018AP016439

PATIENT
  Sex: Female

DRUGS (4)
  1. LEXAPRO [Concomitant]
     Active Substance: ESCITALOPRAM OXALATE
     Indication: PRODUCT USED FOR UNKNOWN INDICATION
     Dosage: UNK
     Route: 065
  2. LOSARTAN. [Concomitant]
     Active Substance: LOSARTAN
     Indication: HYPERTENSION
     Dosage: UNK
     Route: 065
  3. FLUTICASONE PROPIONATE. [Suspect]
     Active Substance: FLUTICASONE PROPIONATE
     Indication: PRODUCT USED FOR UNKNOWN INDICATION
     Dosage: UNK
     Route: 065
  4. OMEPRAZOLE. [Concomitant]
     Active Substance: OMEPRAZOLE
     Indication: GASTRIC DISORDER
     Dosage: UNK
     Route: 065

REACTIONS (11)
  - Oropharyngeal blistering [Recovered/Resolved]
  - Melaena [Unknown]
  - Dyschezia [Unknown]
  - Product contamination physical [Unknown]
  - Blister [Recovered/Resolved]
  - Gastrointestinal oedema [Unknown]
  - Oral discomfort [Unknown]
  - Epistaxis [Recovered/Resolved]
  - Rectal haemorrhage [Unknown]
  - Gastric haemorrhage [Unknown]
  - Oral mucosal blistering [Recovered/Resolved]
